FAERS Safety Report 5890705-8 (Version None)
Quarter: 2008Q3

REPORT INFORMATION
  Report Type: 
  Country: None (occurrence: None)
  Receive Date: 20080922
  Receipt Date: 20080911
  Transmission Date: 20090109
  Serious: Yes (Other)
  Sender: FDA-Public Use
  Company Number: FR-AVENTIS-200813328FR

PATIENT
  Age: 82 Year
  Sex: Male

DRUGS (1)
  1. LOVENOX [Suspect]
     Route: 058
     Dates: start: 20080611

REACTIONS (4)
  - CEREBROVASCULAR ACCIDENT [None]
  - DYSAESTHESIA [None]
  - HEADACHE [None]
  - SPEECH DISORDER [None]
